FAERS Safety Report 7348497 (Version 5)
Quarter: 2013Q4

REPORT INFORMATION
  Report Type: Spontaneous
  Country: US (occurrence: US)
  Receive Date: 20100408
  Receipt Date: 20131119
  Transmission Date: 20140711
  Serious: Yes (Hospitalization)
  Sender: FDA-Public Use
  Company Number: US-BAYER-201018539NA

PATIENT
  Age: 16 Year
  Sex: Female
  Weight: 65.62 kg

DRUGS (11)
  1. YAZ [Suspect]
     Indication: ACNE
     Dosage: UNK UNK, UNK
     Route: 048
     Dates: start: 20080519, end: 20091116
  2. YAZ [Suspect]
     Indication: OVARIAN CYST
  3. YAZ [Suspect]
     Indication: MENSTRUAL CYCLE MANAGEMENT
  4. YASMIN [Suspect]
     Indication: PROPHYLAXIS
  5. OCELLA [Suspect]
     Indication: PROPHYLAXIS
  6. MAALOX [Concomitant]
  7. NIACIN [Concomitant]
  8. AMOXICILLIN [Concomitant]
  9. VERAMYST [Concomitant]
  10. HYDROCODONE [Concomitant]
  11. NAPROSYN [Concomitant]

REACTIONS (6)
  - Pancreatitis acute [None]
  - Pancreatitis [Recovered/Resolved]
  - Cholecystitis chronic [None]
  - Pain [None]
  - Emotional distress [None]
  - Mental disorder [None]
